FAERS Safety Report 10064863 (Version 1)
Quarter: 2014Q1

REPORT INFORMATION
  Report Type: Spontaneous
  Country: US (occurrence: None)
  Receive Date: 20140328
  Receipt Date: 20140328
  Transmission Date: 20141002
  Serious: Yes (Other)
  Sender: FDA-Public Use
  Company Number: 1000052570

PATIENT
  Sex: Female

DRUGS (2)
  1. LINZESS (LINACLOTIDE) (145 MICROGRAM, CAPSULES) [Suspect]
     Dosage: 1 IN 1 D
  2. ANTISPASMODIC NOS [Suspect]
     Indication: ABDOMINAL PAIN

REACTIONS (2)
  - Abdominal pain [None]
  - Constipation [None]
